FAERS Safety Report 10917149 (Version 1)
Quarter: 2015Q1

REPORT INFORMATION
  Report Type: Spontaneous
  Country: US (occurrence: None)
  Receive Date: 20150312
  Receipt Date: 20150312
  Transmission Date: 20150721
  Serious: Yes (Hospitalization)
  Sender: FDA-Public Use
  Company Number: None

PATIENT
  Age: 55 Year
  Sex: Male
  Weight: 83 kg

DRUGS (25)
  1. ALENDRONATE [Concomitant]
     Active Substance: ALENDRONATE SODIUM
  2. OLMESARTAN [Concomitant]
     Active Substance: OLMESARTAN
  3. PREDNISONE. [Concomitant]
     Active Substance: PREDNISONE
  4. FISH OIL [Concomitant]
     Active Substance: FISH OIL
  5. OMEPRAZOLE. [Concomitant]
     Active Substance: OMEPRAZOLE
  6. TRAMADOL [Concomitant]
     Active Substance: TRAMADOL
  7. RIVAROXABAN [Suspect]
     Active Substance: RIVAROXABAN
     Indication: DEEP VEIN THROMBOSIS
     Dosage: 1 TABLET
     Route: 048
     Dates: start: 20141109, end: 20150308
  8. ETANERCEPT [Concomitant]
     Active Substance: ETANERCEPT
  9. ADVAIR DISKUS [Concomitant]
     Active Substance: FLUTICASONE PROPIONATE\SALMETEROL XINAFOATE
  10. FUROSEMIDE. [Concomitant]
     Active Substance: FUROSEMIDE
  11. METFORMIN [Concomitant]
     Active Substance: METFORMIN HYDROCHLORIDE
  12. TRIAMETEREN-HCTZ [Concomitant]
  13. VITAMIN D [Concomitant]
     Active Substance: CHOLECALCIFEROL
  14. HYDROCODONE/APAP [Concomitant]
     Active Substance: ACETAMINOPHEN\HYDROCODONE
  15. LISINOPRIL. [Concomitant]
     Active Substance: LISINOPRIL
  16. METHOTREXATE [Concomitant]
     Active Substance: METHOTREXATE
  17. FOLIC ACID. [Concomitant]
     Active Substance: FOLIC ACID
  18. LEFLUNOMIDE. [Concomitant]
     Active Substance: LEFLUNOMIDE
  19. GABAPENTIN. [Concomitant]
     Active Substance: GABAPENTIN
  20. OSTEO BIFLEX [Concomitant]
  21. POTASSIUM CHLORIDE. [Concomitant]
     Active Substance: POTASSIUM CHLORIDE
  22. VITAMIN C [Concomitant]
     Active Substance: ASCORBIC ACID
  23. MULTIVITAMIN [Concomitant]
     Active Substance: VITAMINS
  24. PROPRANOLOL [Concomitant]
     Active Substance: PROPRANOLOL\PROPRANOLOL HYDROCHLORIDE
  25. ROSUVASTATIN [Concomitant]
     Active Substance: ROSUVASTATIN

REACTIONS (2)
  - Gastrointestinal haemorrhage [None]
  - Abdominal pain upper [None]

NARRATIVE: CASE EVENT DATE: 20150308
